FAERS Safety Report 8193132-6 (Version None)
Quarter: 2012Q1

REPORT INFORMATION
  Report Type: 
  Country: None (occurrence: None)
  Receive Date: 20120221
  Receipt Date: 20111104
  Transmission Date: 20120608
  Serious: No
  Sender: FDA-Public Use
  Company Number: 037737

PATIENT
  Sex: Female
  Weight: 64 kg

DRUGS (3)
  1. LACOSAMIDE [Suspect]
     Indication: EPILEPSY
     Dosage: (100 MG QD ORAL)
     Route: 048
     Dates: start: 20110519
  2. LACOSAMIDE [Suspect]
     Indication: COMPLEX PARTIAL SEIZURES
     Dosage: (100 MG QD ORAL)
     Route: 048
     Dates: start: 20110519
  3. KEPPRA [Suspect]
     Indication: EPILEPSY
     Dosage: (2750 MG, 1250 MG: AM AND 1500 MG:PM ORAL)
     Route: 048
     Dates: start: 20100818

REACTIONS (4)
  - CONVULSION [None]
  - WEIGHT INCREASED [None]
  - INCREASED APPETITE [None]
  - MEDICATION ERROR [None]
